FAERS Safety Report 12223382 (Version 4)
Quarter: 2016Q4

REPORT INFORMATION
  Report Type: Spontaneous
  Country: US (occurrence: US)
  Receive Date: 20160330
  Receipt Date: 20161104
  Transmission Date: 20170207
  Serious: Yes (Death, Hospitalization)
  Sender: FDA-Public Use
  Company Number: US-JNJFOC-20160326855

PATIENT
  Age: 79 Year
  Sex: Female

DRUGS (4)
  1. ASPIRIN. [Suspect]
     Active Substance: ASPIRIN
     Indication: PRODUCT USED FOR UNKNOWN INDICATION
     Route: 065
  2. XARELTO [Suspect]
     Active Substance: RIVAROXABAN
     Indication: CEREBROVASCULAR ACCIDENT PROPHYLAXIS
     Dosage: 10-20MG APPROXIMATELY,??EXACT DOSAGE UNKNOWN
     Route: 048
     Dates: start: 20141101, end: 20160117
  3. XARELTO [Suspect]
     Active Substance: RIVAROXABAN
     Indication: THROMBOSIS PROPHYLAXIS
     Dosage: 10-20MG APPROXIMATELY,??EXACT DOSAGE UNKNOWN
     Route: 048
     Dates: start: 20141101, end: 20160117
  4. XARELTO [Suspect]
     Active Substance: RIVAROXABAN
     Indication: ATRIAL FIBRILLATION
     Dosage: 10-20MG APPROXIMATELY,??EXACT DOSAGE UNKNOWN
     Route: 048
     Dates: start: 20141101, end: 20160117

REACTIONS (3)
  - Internal haemorrhage [Fatal]
  - Haematoma [Unknown]
  - Haematoma [Unknown]

NARRATIVE: CASE EVENT DATE: 20150624
